FAERS Safety Report 6132000-8 (Version None)
Quarter: 2009Q1

REPORT INFORMATION
  Report Type: 
  Country: None (occurrence: None)
  Receive Date: 20090325
  Receipt Date: 20090316
  Transmission Date: 20090719
  Serious: Yes (Death)
  Sender: FDA-Public Use
  Company Number: PHHY2009JP10153

PATIENT
  Sex: Male

DRUGS (4)
  1. ZOMETA [Suspect]
     Dosage: 4 MG, UNK
     Route: 042
     Dates: start: 20080206, end: 20080321
  2. LOXONIN [Concomitant]
     Dosage: 180 MG, UNK
     Route: 048
     Dates: start: 20080207, end: 20080329
  3. MS CONTIN [Concomitant]
     Dosage: 20 MG, UNK
     Route: 048
     Dates: start: 20080209, end: 20080329
  4. MORPHINE HYDROCHLORIDE [Concomitant]
     Dosage: 100 MG, UNK
     Dates: start: 20080215, end: 20080407

REACTIONS (1)
  - MALIGNANT NEOPLASM PROGRESSION [None]
